FAERS Safety Report 4644651-8 (Version None)
Quarter: 2005Q2

REPORT INFORMATION
  Report Type: 
  Country: None (occurrence: None)
  Receive Date: 20050422
  Receipt Date: 20050408
  Transmission Date: 20051028
  Serious: Yes (Other)
  Sender: FDA-Public Use
  Company Number: FABR-10436

PATIENT
  Age: 33 Year
  Sex: Male
  Weight: 48 kg

DRUGS (19)
  1. FABRAZYME [Suspect]
     Indication: FABRY'S DISEASE
     Dosage: 0.5 MG/KG, IV
     Route: 042
     Dates: start: 19991124
  2. FABRAZYME [Suspect]
     Indication: FABRY'S DISEASE
     Dosage: 0.5 MG/KG, IV
     Route: 042
     Dates: start: 20040115
  3. FABRAZYME [Suspect]
     Indication: FABRY'S DISEASE
     Dosage: 1 MG, IV
     Route: 042
     Dates: start: 20040205
  4. FABRAZYME [Suspect]
     Indication: FABRY'S DISEASE
     Dosage: 0.5 MG/KG Q2WKS, IV
     Route: 042
     Dates: start: 20040603
  5. FABRAZYME [Suspect]
     Indication: FABRY'S DISEASE
     Dosage: 0.6 MG/KG, IV
     Route: 042
  6. FABRAZYME [Suspect]
     Indication: FABRY'S DISEASE
     Dosage: 0.7 MG/KG, IV
     Route: 042
  7. FABRAZYME [Suspect]
     Indication: FABRY'S DISEASE
     Dosage: 0.8 MG/KG, IV
     Route: 042
  8. FABRAZYME [Suspect]
     Indication: FABRY'S DISEASE
     Dosage: 0.9 MG/KG, IV
     Route: 042
  9. FABRAZYME [Suspect]
     Indication: FABRY'S DISEASE
     Dosage: 1 MG/KG, IV
     Route: 042
  10. FABRAZYME [Suspect]
     Indication: FABRY'S DISEASE
     Dosage: 1.1 MG/KG, IV
     Route: 042
  11. FABRAZYME [Suspect]
     Indication: FABRY'S DISEASE
     Dosage: 1.2 MG/KG, IV
     Route: 042
  12. TEGRETOL [Concomitant]
  13. TRIATEC [Concomitant]
  14. KENZEN [Concomitant]
  15. LOPERAMIDE HCL [Concomitant]
  16. OROKEN [Concomitant]
  17. NITROGLYCERIN [Concomitant]
  18. ZYRTEC [Concomitant]
  19. PRIMPERAN TAB [Concomitant]

REACTIONS (8)
  - FACE OEDEMA [None]
  - INFUSION RELATED REACTION [None]
  - NAUSEA [None]
  - PRURITUS [None]
  - RASH [None]
  - SKIN TEST POSITIVE [None]
  - URTICARIA [None]
  - VOMITING [None]
